FAERS Safety Report 8106596-0 (Version None)
Quarter: 2012Q1

REPORT INFORMATION
  Report Type: 
  Country: None (occurrence: None)
  Receive Date: 20120202
  Receipt Date: 20120123
  Transmission Date: 20120608
  Serious: Yes (Hospitalization)
  Sender: FDA-Public Use
  Company Number: US-BAYER-2012-001242

PATIENT
  Age: 27 Year
  Sex: Female
  Weight: 100 kg

DRUGS (5)
  1. LOVENOX [Concomitant]
     Indication: DEEP VEIN THROMBOSIS
  2. PIROXICAM [Concomitant]
     Dosage: 20 MG, QD
     Route: 048
  3. VICODIN [Concomitant]
  4. YASMIN [Suspect]
     Indication: CONTRACEPTION
     Dosage: UNK
     Route: 048
  5. CYCLOBENZAPRINE [Concomitant]
     Dosage: 10 MG, TID
     Route: 048

REACTIONS (1)
  - DEEP VEIN THROMBOSIS [None]
